FAERS Safety Report 22070843 (Version 2)
Quarter: 2023Q1

REPORT INFORMATION
  Report Type: Spontaneous
  Country: JP (occurrence: JP)
  Receive Date: 20230307
  Receipt Date: 20230317
  Transmission Date: 20230418
  Serious: Yes (Hospitalization, Other)
  Sender: FDA-Public Use
  Company Number: JP-BAXTER-2023BAX014458

PATIENT
  Age: 37 Year
  Sex: Male

DRUGS (11)
  1. CYCLOPHOSPHAMIDE [Suspect]
     Active Substance: CYCLOPHOSPHAMIDE
     Dosage: 40 MG/KG/DAY
     Route: 065
     Dates: start: 20230125, end: 20230125
  2. TACROLIMUS [Suspect]
     Active Substance: TACROLIMUS
     Indication: Prophylaxis against transplant rejection
     Dosage: 3 MG/DAY
     Route: 048
     Dates: start: 20230221
  3. EDOXABAN TOSYLATE [Concomitant]
     Active Substance: EDOXABAN TOSYLATE
     Indication: Thrombosis prophylaxis
     Dosage: 30 MG/DAY
     Route: 048
     Dates: start: 20230207
  4. FLUCONAZOLE [Concomitant]
     Active Substance: FLUCONAZOLE
     Indication: Infection prophylaxis
     Dosage: 100 MG/DAY
     Route: 048
     Dates: start: 20230201
  5. SULFAMETHOXAZOLE\TRIMETHOPRIM [Concomitant]
     Active Substance: SULFAMETHOXAZOLE\TRIMETHOPRIM
     Indication: Infection prophylaxis
     Dosage: 1 DOSAGE FORM/DAY
     Route: 048
     Dates: start: 20230130
  6. VALACYCLOVIR HYDROCHLORIDE [Concomitant]
     Active Substance: VALACYCLOVIR HYDROCHLORIDE
     Indication: Infection prophylaxis
     Dosage: 500 MG/DAY
     Route: 048
     Dates: start: 20230128
  7. RABEPRAZOLE SODIUM [Concomitant]
     Active Substance: RABEPRAZOLE SODIUM
     Indication: Gastritis prophylaxis
     Dosage: 10 MG/DAY
     Route: 048
     Dates: start: 20230128
  8. REBAMIPIDE [Concomitant]
     Active Substance: REBAMIPIDE
     Indication: Gastritis prophylaxis
     Dosage: 300 MG/DAY
     Route: 048
     Dates: start: 20230128
  9. URSODIOL [Concomitant]
     Active Substance: URSODIOL
     Indication: Hypercholia
     Dosage: 600 MG/DAY
     Route: 048
     Dates: start: 20230128
  10. CALONAL [Concomitant]
     Active Substance: ACETAMINOPHEN
     Indication: Wound complication
     Dosage: UNK
     Route: 048
     Dates: start: 20230201
  11. MEDROL [Concomitant]
     Active Substance: METHYLPREDNISOLONE
     Indication: Contrast media allergy
     Dosage: 32 MG/DAY
     Route: 048
     Dates: start: 20230203, end: 20230204

REACTIONS (1)
  - Transplant rejection [Recovering/Resolving]

NARRATIVE: CASE EVENT DATE: 20230225
